FAERS Safety Report 8367599-4 (Version None)
Quarter: 2012Q2

REPORT INFORMATION
  Report Type: 
  Country: None (occurrence: None)
  Receive Date: 20120517
  Receipt Date: 20120511
  Transmission Date: 20120825
  Serious: Yes (Hospitalization)
  Sender: FDA-Public Use
  Company Number: LT-ABBOTT-12P-234-0928560-00

PATIENT
  Age: 61 Year
  Sex: Female

DRUGS (2)
  1. DEPAKENE [Suspect]
     Indication: COMPLETED SUICIDE
     Route: 048
  2. GABITRIL [Suspect]
     Indication: COMPLETED SUICIDE
     Route: 048

REACTIONS (4)
  - INTENTIONAL OVERDOSE [None]
  - DYSKINESIA [None]
  - SOMNOLENCE [None]
  - COORDINATION ABNORMAL [None]
